FAERS Safety Report 12331501 (Version 3)
Quarter: 2016Q2

REPORT INFORMATION
  Report Type: Spontaneous
  Country: US (occurrence: US)
  Receive Date: 20160504
  Receipt Date: 20160608
  Transmission Date: 20160815
  Serious: Yes (Other)
  Sender: FDA-Public Use
  Company Number: US-GLAXOSMITHKLINE-US2016GSK061393

PATIENT
  Sex: Female
  Weight: 92.52 kg

DRUGS (1)
  1. CARVEDILOL. [Suspect]
     Active Substance: CARVEDILOL
     Indication: PRODUCT USED FOR UNKNOWN INDICATION
     Dosage: UNK, U
     Route: 048
     Dates: start: 201110, end: 201209

REACTIONS (5)
  - Cardiac failure congestive [Unknown]
  - Cardiomyopathy [Unknown]
  - Fluid retention [Unknown]
  - Dyspnoea [Unknown]
  - Drug ineffective [Unknown]
